FAERS Safety Report 16322153 (Version 1)
Quarter: 2019Q2

REPORT INFORMATION
  Report Type: Spontaneous
  Country: MZ (occurrence: MZ)
  Receive Date: 20190516
  Receipt Date: 20190516
  Transmission Date: 20190711
  Serious: Yes (Other)
  Sender: FDA-Public Use
  Company Number: MZ-GLAXOSMITHKLINE-MZ2019GSK083468

PATIENT
  Age: 3 Month
  Sex: Male
  Weight: 4.3 kg

DRUGS (8)
  1. LAMIVUDINE. [Suspect]
     Active Substance: LAMIVUDINE
     Dosage: UNK
     Route: 063
  2. EFAVIRENZ. [Suspect]
     Active Substance: EFAVIRENZ
     Indication: ANTIRETROVIRAL THERAPY
     Dosage: UNK
     Route: 064
  3. TENOFOVIR DISOPROXIL FUMARATE. [Suspect]
     Active Substance: TENOFOVIR DISOPROXIL FUMARATE
     Dosage: UNK
     Route: 063
  4. TENOFOVIR DISOPROXIL FUMARATE. [Suspect]
     Active Substance: TENOFOVIR DISOPROXIL FUMARATE
     Indication: ANTIRETROVIRAL THERAPY
     Dosage: UNK
     Route: 064
  5. EFAVIRENZ. [Suspect]
     Active Substance: EFAVIRENZ
     Dosage: UNK
     Route: 063
  6. COTRIMOXAZOLE [Suspect]
     Active Substance: SULFAMETHOXAZOLE\TRIMETHOPRIM
     Indication: PRODUCT USED FOR UNKNOWN INDICATION
     Dosage: UNK
  7. NEVIRAPINE. [Suspect]
     Active Substance: NEVIRAPINE
     Indication: PROPHYLAXIS
     Dosage: UNK
  8. LAMIVUDINE. [Suspect]
     Active Substance: LAMIVUDINE
     Indication: ANTIRETROVIRAL THERAPY
     Dosage: UNK
     Route: 064

REACTIONS (20)
  - Bone tuberculosis [Unknown]
  - Congenital tuberculosis [Unknown]
  - Mass [Recovering/Resolving]
  - Tachypnoea [Unknown]
  - Lung infiltration [Recovering/Resolving]
  - Foetal exposure during pregnancy [Unknown]
  - Respiratory distress [Recovered/Resolved]
  - Rales [Unknown]
  - Anaemia [Recovered/Resolved]
  - Crepitations [Unknown]
  - Bone erosion [Unknown]
  - Use of accessory respiratory muscles [Unknown]
  - Pulmonary tuberculosis [Unknown]
  - Irritability [Recovered/Resolved]
  - Osteopenia [Unknown]
  - Pyrexia [Recovered/Resolved]
  - Pallor [Unknown]
  - Pneumonia bacterial [Unknown]
  - Exposure via breast milk [Unknown]
  - Hypoxia [Unknown]
